FAERS Safety Report 8584839-7 (Version None)
Quarter: 2012Q3

REPORT INFORMATION
  Report Type: 
  Country: None (occurrence: None)
  Receive Date: 20120810
  Receipt Date: 20120727
  Transmission Date: 20120928
  Serious: No
  Sender: FDA-Public Use
  Company Number: GB-JNJFOC-20111008119

PATIENT
  Sex: Male

DRUGS (2)
  1. DURAGESIC-100 [Suspect]
     Indication: PRODUCT USED FOR UNKNOWN INDICATION
     Dosage: 2 X 25 UG/HR
     Route: 062
  2. DURAGESIC-100 [Suspect]
     Dosage: PATIENT WAS TREATED WITH 25UG/HR AND 75UG/HR PATCHES.
     Route: 062

REACTIONS (3)
  - PRODUCT QUALITY ISSUE [None]
  - HYPERHIDROSIS [None]
  - WRONG TECHNIQUE IN DRUG USAGE PROCESS [None]
